FAERS Safety Report 8812711 (Version 3)
Quarter: 2012Q4

REPORT INFORMATION
  Report Type: 
  Country: US (occurrence: US)
  Receive Date: 20120927
  Receipt Date: 20121213
  Transmission Date: 20130627
  Serious: Yes (Hospitalization, Other)
  Sender: FDA-Public Use
  Company Number: US-009507513-2008-188129-NL

PATIENT

DRUGS (10)
  1. NUVARING [Suspect]
     Indication: MENORRHAGIA
     Dosage: DOSE TEXT: 3 WEEKS INSERTED AND 1 WEEK OUT, CONTINUING: NO
     Dates: start: 20080529, end: 200807
  2. NUVARING [Suspect]
     Indication: DYSMENORRHOEA
     Dosage: DOSE TEXT: CONTINUOUSLY, CONTINUING: NO
     Dates: start: 200808, end: 20080825
  3. PROZAC [Concomitant]
     Indication: DEPRESSION
     Dosage: 40 mg, QD
  4. WELLBUTRIN [Concomitant]
     Indication: DEPRESSION
     Dosage: 150 mg, QD
  5. WELLBUTRIN [Concomitant]
     Indication: DEPRESSION
     Dosage: 300 mg, QD
     Dates: start: 2005
  6. MOL-IRON [Concomitant]
     Dosage: 325 mg, QD
  7. VITAMINS (UNSPECIFIED) [Concomitant]
     Dosage: DOSE TEXT: DAILY
  8. CALCIUM (UNSPECIFIED) (+) CHOLECALCIFEROL [Concomitant]
     Dosage: DOSE TEXT: UNCERTAIN OF DOSAGE
  9. IRON (UNSPECIFIED) [Concomitant]
     Dosage: 50 mg, QD
  10. TEA [Concomitant]
     Dosage: 1 CUP 3 X/WEEK

REACTIONS (19)
  - Pulmonary embolism [Recovering/Resolving]
  - Lung disorder [Not Recovered/Not Resolved]
  - Off label use [Recovered/Resolved]
  - Anxiety [Unknown]
  - Muscle spasms [Unknown]
  - Deep vein thrombosis [Unknown]
  - Depression [Unknown]
  - Sinusitis [Unknown]
  - Cellulitis [Not Recovered/Not Resolved]
  - Skin lesion excision [Unknown]
  - Ovarian cyst [Unknown]
  - Smear cervix abnormal [Unknown]
  - Endometriosis [Unknown]
  - Skin lesion [Unknown]
  - Acrochordon [Unknown]
  - Cyst [Unknown]
  - Tonsillectomy [Unknown]
  - Ear disorder [Unknown]
  - Cyst removal [Unknown]
